FAERS Safety Report 8272137-0 (Version None)
Quarter: 2012Q2

REPORT INFORMATION
  Report Type: 
  Country: None (occurrence: None)
  Receive Date: 20120410
  Receipt Date: 20120330
  Transmission Date: 20120825
  Serious: Yes (Hospitalization, Other)
  Sender: FDA-Public Use
  Company Number: US-ASTRAZENECA-2012SE10478

PATIENT
  Age: 23013 Day
  Sex: Male

DRUGS (6)
  1. AMLODIPINE [Concomitant]
  2. LISINOPRIL [Concomitant]
     Route: 048
  3. VANDETANIB [Suspect]
     Indication: THYROID CANCER
     Route: 048
  4. DRONABINOL [Concomitant]
     Route: 048
  5. FLUTICASONE PROPIONATE [Concomitant]
     Route: 048
  6. LEVOTHYROXINE SODIUM [Concomitant]
     Route: 048

REACTIONS (3)
  - BLOOD PRESSURE INCREASED [None]
  - HYPERTENSIVE CRISIS [None]
  - CHEST DISCOMFORT [None]
